FAERS Safety Report 18705397 (Version 1)
Quarter: 2021Q1

REPORT INFORMATION
  Report Type: Spontaneous
  Country: GB (occurrence: GB)
  Receive Date: 20210106
  Receipt Date: 20210106
  Transmission Date: 20210419
  Serious: Yes (Hospitalization, Other)
  Sender: FDA-Public Use
  Company Number: GB-ROCHE-2546408

PATIENT
  Sex: Male
  Weight: 82.2 kg

DRUGS (3)
  1. HERCEPTIN [Suspect]
     Active Substance: TRASTUZUMAB
     Indication: RECTAL CANCER METASTATIC
     Dosage: 504 AND 420MG
     Route: 041
     Dates: start: 20191109, end: 20200622
  2. PERJETA [Suspect]
     Active Substance: PERTUZUMAB
     Route: 042
  3. PERJETA [Suspect]
     Active Substance: PERTUZUMAB
     Indication: RECTAL CANCER METASTATIC
     Route: 042
     Dates: start: 20191206

REACTIONS (6)
  - Hypersensitivity [Recovered/Resolved]
  - Infusion related reaction [Unknown]
  - Nasopharyngitis [Unknown]
  - Chills [Unknown]
  - Drug hypersensitivity [Unknown]
  - Dyspnoea [Unknown]

NARRATIVE: CASE EVENT DATE: 20191109
